FAERS Safety Report 9375389 (Version 1)
Quarter: 2013Q2

REPORT INFORMATION
  Report Type: Spontaneous
  Country: FR (occurrence: FR)
  Receive Date: 20130628
  Receipt Date: 20130628
  Transmission Date: 20140414
  Serious: Yes (Death)
  Sender: FDA-Public Use
  Company Number: FR-TEVA-415347ISR

PATIENT
  Age: 75 Year
  Sex: Female

DRUGS (1)
  1. FUROSEMIDE TEVA 40MG, SCORED TABLET [Suspect]
     Indication: CARDIAC FAILURE
     Dosage: 1 DOSAGE FORMS DAILY;
     Route: 048
     Dates: start: 20130602

REACTIONS (2)
  - Lung infection [Fatal]
  - Respiratory failure [Fatal]
